FAERS Safety Report 5921454-5 (Version None)
Quarter: 2008Q4

REPORT INFORMATION
  Report Type: 
  Country: None (occurrence: None)
  Receive Date: 20081014
  Receipt Date: 20081003
  Transmission Date: 20090506
  Serious: Yes (Other)
  Sender: FDA-Public Use
  Company Number: 2008BI015968

PATIENT
  Age: 41 Year
  Sex: Female

DRUGS (1)
  1. TYSABRI [Suspect]
     Indication: MULTIPLE SCLEROSIS
     Dosage: 300 MG; QM; IV
     Route: 042
     Dates: start: 20070724, end: 20080722

REACTIONS (11)
  - CONDITION AGGRAVATED [None]
  - CONVULSION [None]
  - DRUG DOSE OMISSION [None]
  - HYPOAESTHESIA [None]
  - LIP SWELLING [None]
  - MULTIPLE SCLEROSIS [None]
  - MULTIPLE SCLEROSIS RELAPSE [None]
  - MUSCLE SPASMS [None]
  - NASOPHARYNGITIS [None]
  - PERIORBITAL HAEMATOMA [None]
  - SWELLING FACE [None]
